FAERS Safety Report 8846859 (Version 1)
Quarter: 2012Q4

REPORT INFORMATION
  Report Type: 
  Country: US (occurrence: US)
  Receive Date: 20121018
  Receipt Date: 20121018
  Transmission Date: 20130627
  Serious: No
  Sender: FDA-Public Use
  Company Number: US-009507513-1210USA007533

PATIENT
  Sex: Female

DRUGS (2)
  1. NEXPLANON [Suspect]
     Dosage: 68 mg, UNK
     Route: 059
     Dates: start: 20121002
  2. NEXPLANON [Suspect]
     Dosage: 68 mg, UNK
     Dates: start: 20121002

REACTIONS (3)
  - Device difficult to use [Unknown]
  - No adverse event [Unknown]
  - Device difficult to use [Unknown]
